FAERS Safety Report 11663674 (Version 1)
Quarter: 2015Q4

REPORT INFORMATION
  Report Type: Report from Study
  Country: US (occurrence: US)
  Receive Date: 20151027
  Receipt Date: 20151027
  Transmission Date: 20160304
  Serious: Yes (Hospitalization, Other)
  Sender: FDA-Public Use
  Company Number: PHHO2015US017109

PATIENT
  Age: 79 Year
  Sex: Female

DRUGS (1)
  1. ARZERRA [Suspect]
     Active Substance: OFATUMUMAB
     Indication: CHRONIC LYMPHOCYTIC LEUKAEMIA
     Dosage: 2000 MG, QMO
     Route: 042
     Dates: start: 20140805

REACTIONS (2)
  - Myocardial infarction [Unknown]
  - Epistaxis [Unknown]

NARRATIVE: CASE EVENT DATE: 20151002
